FAERS Safety Report 4855970-4 (Version None)
Quarter: 2005Q4

REPORT INFORMATION
  Report Type: 
  Country: None (occurrence: None)
  Receive Date: 20051216
  Receipt Date: 20051215
  Transmission Date: 20060501
  Serious: Yes (Other)
  Sender: FDA-Public Use
  Company Number: 200514863EU

PATIENT
  Age: 50 Year
  Sex: Female

DRUGS (2)
  1. NICORETTE [Suspect]
     Indication: SMOKING CESSATION THERAPY
     Dosage: 12MG THREE TIMES PER DAY
     Route: 002
  2. FLUVOXAMINE MALEATE [Concomitant]
     Indication: DEPRESSION
     Dates: start: 20040101

REACTIONS (3)
  - DEPENDENCE [None]
  - DRUG DEPENDENCE [None]
  - MEDICATION ERROR [None]
